FAERS Safety Report 9556757 (Version 1)
Quarter: 2013Q3

REPORT INFORMATION
  Report Type: Spontaneous
  Country: US (occurrence: US)
  Receive Date: 20130926
  Receipt Date: 20130926
  Transmission Date: 20140515
  Serious: No
  Sender: FDA-Public Use
  Company Number: US-PFIZER INC-2013276641

PATIENT
  Age: 65 Year
  Sex: Male
  Weight: 122 kg

DRUGS (2)
  1. CHANTIX [Suspect]
     Indication: SMOKING CESSATION THERAPY
     Dosage: 0.5 MG, DAILY
     Dates: start: 2009
  2. BABY ASPIRIN [Concomitant]
     Dosage: 81 MG, DAILY

REACTIONS (1)
  - Abnormal dreams [Recovered/Resolved]
